FAERS Safety Report 7144820-1 (Version None)
Quarter: 2010Q4

REPORT INFORMATION
  Report Type: 
  Country: None (occurrence: None)
  Receive Date: 20101208
  Receipt Date: 20101129
  Transmission Date: 20110411
  Serious: Yes (Hospitalization, Other)
  Sender: FDA-Public Use
  Company Number: US-ELI_LILLY_AND_COMPANY-US201002003457

PATIENT
  Sex: Female
  Weight: 87.982 kg

DRUGS (18)
  1. BYETTA [Suspect]
     Indication: DIABETES MELLITUS
     Dosage: UNK, 2/D
     Route: 065
     Dates: start: 20060601
  2. METFORMIN HCL [Concomitant]
     Indication: DIABETES MELLITUS
     Dosage: 1000 MG, EACH MORNING
  3. METFORMIN HCL [Concomitant]
     Dosage: 500 MG, EACH EVENING
  4. ACTOS [Concomitant]
     Indication: DIABETES MELLITUS
     Dosage: 30 MG, DAILY (1/D)
     Route: 048
  5. NORVASC [Concomitant]
  6. SYMBICORT [Concomitant]
  7. ADVAIR [Concomitant]
  8. ALBUTEROL [Concomitant]
     Dosage: UNK, AS NEEDED
  9. NITROGLYCERIN [Concomitant]
     Indication: CHEST PAIN
  10. HYDROCHLOROTHIAZIDE [Concomitant]
     Dosage: 25 MG, DAILY (1/D)
  11. LOTREL [Concomitant]
     Dosage: UNK, EACH MORNING
  12. ASPIRIN [Concomitant]
     Dosage: 81 MG, DAILY (1/D)
  13. PRILOSEC [Concomitant]
     Dosage: UNK, AS NEEDED
  14. POTASSIUM CHLORIDE [Concomitant]
     Dosage: 20 MEQ, DAILY (1/D)
  15. DIURETICS [Concomitant]
  16. NSAID'S [Concomitant]
  17. ANTIBIOTICS [Concomitant]
  18. ACETAMINOPHEN [Concomitant]

REACTIONS (4)
  - ABDOMINAL DISTENSION [None]
  - ABDOMINAL PAIN UPPER [None]
  - DYSPEPSIA [None]
  - PANCREATITIS [None]
